FAERS Safety Report 9019420 (Version 2)
Quarter: 2013Q1

REPORT INFORMATION
  Report Type: Report from Study
  Country: AU (occurrence: AU)
  Receive Date: 20130119
  Receipt Date: 20130130
  Transmission Date: 20140127
  Serious: Yes (Other)
  Sender: FDA-Public Use
  Company Number: AU-009507513-1301AUS007125

PATIENT
  Age: 68 Year
  Sex: Female

DRUGS (7)
  1. VYTORIN [Suspect]
  2. OMEPRAZOLE [Suspect]
  3. ASPIRIN [Suspect]
  4. BISOPROLOL FUMARATE [Suspect]
  5. DITHIAZIDE [Suspect]
  6. HUMIRA [Suspect]
     Indication: CROHN^S DISEASE
     Dosage: 40 MG, FORTNIGHTLY
     Route: 058
     Dates: start: 20081230, end: 20101019
  7. PREDNISOLONE [Suspect]

REACTIONS (3)
  - Cerebral infarction [Recovered/Resolved]
  - Embolic stroke [None]
  - Ischaemic stroke [None]
